FAERS Safety Report 16994816 (Version 2)
Quarter: 2019Q4

REPORT INFORMATION
  Report Type: Spontaneous
  Country: HU (occurrence: HU)
  Receive Date: 20191105
  Receipt Date: 20191223
  Transmission Date: 20200122
  Serious: Yes (Hospitalization)
  Sender: FDA-Public Use
  Company Number: HU-JNJFOC-20191048301

PATIENT
  Age: 73 Year
  Sex: Female

DRUGS (12)
  1. MINIPRESS [Concomitant]
     Active Substance: PRAZOSIN HYDROCHLORIDE
     Dosage: UNK
  2. LYRICA [Concomitant]
     Active Substance: PREGABALIN
     Dosage: UNK
  3. INSULIN [Concomitant]
     Active Substance: INSULIN NOS
     Dosage: UNK
  4. ULTRIX [Concomitant]
     Dosage: UNK
  5. AMLODIPINE [Concomitant]
     Active Substance: AMLODIPINE BESYLATE
     Dosage: UNK
  6. MILURIT [Concomitant]
     Active Substance: ALLOPURINOL
     Dosage: UNK
  7. THIOGAMMA [Concomitant]
     Active Substance: .ALPHA.-LIPOIC ACID
     Dosage: UNK
  8. SORBIFER [Concomitant]
     Active Substance: FERROUS SULFATE
     Dosage: UNK
  9. TRENTAL [Concomitant]
     Active Substance: PENTOXIFYLLINE
     Dosage: UNK
  10. XARELTO [Suspect]
     Active Substance: RIVAROXABAN
     Indication: ATRIAL FIBRILLATION
     Dosage: 15 MG, QD
     Route: 048
     Dates: start: 201807, end: 20190906
  11. CONCOR [Concomitant]
     Active Substance: BISOPROLOL FUMARATE
     Dosage: UNK
  12. FURON [Concomitant]
     Active Substance: FUROSEMIDE
     Dosage: UNK

REACTIONS (1)
  - Peripheral embolism [Recovered/Resolved]

NARRATIVE: CASE EVENT DATE: 20190906
